FAERS Safety Report 5162666-0 (Version None)
Quarter: 2006Q4

REPORT INFORMATION
  Report Type: 
  Country: None (occurrence: None)
  Receive Date: 20061201
  Receipt Date: 20041011
  Transmission Date: 20070319
  Serious: Yes (Life-Threatening, Hospitalization)
  Sender: FDA-Public Use
  Company Number: FRWYE102311OCT04

PATIENT
  Sex: Female

DRUGS (6)
  1. ENBREL [Suspect]
     Indication: RHEUMATOID ARTHRITIS
     Dosage: UNKNOWN
     Route: 058
     Dates: start: 20030115, end: 20040315
  2. ACETAMINOPHEN W/ PROPOXYPHENE HCL [Concomitant]
     Dosage: UNKNOWN
     Route: 065
  3. FLECAINIDE ACETATE [Concomitant]
     Dosage: UNKNOWN
     Route: 065
  4. SECTRAL [Concomitant]
     Dosage: UNKNOWN
     Route: 065
  5. METHOTREXATE [Concomitant]
     Route: 065
     Dates: end: 20041201
  6. CORTANCYL [Concomitant]
     Route: 048

REACTIONS (16)
  - AFFECTIVE DISORDER [None]
  - AMNESIA [None]
  - APHASIA [None]
  - APRAXIA [None]
  - BLINDNESS [None]
  - COGNITIVE DISORDER [None]
  - CREUTZFELDT-JAKOB DISEASE [None]
  - CSF PROTEIN ABNORMAL [None]
  - DIPLOPIA [None]
  - DISORIENTATION [None]
  - ELECTROENCEPHALOGRAM ABNORMAL [None]
  - HALLUCINATION, VISUAL [None]
  - HEADACHE [None]
  - NEUROLOGIC NEGLECT SYNDROME [None]
  - NUCLEAR MAGNETIC RESONANCE IMAGING ABNORMAL [None]
  - PERSONALITY CHANGE [None]
